FAERS Safety Report 19711403 (Version 1)
Quarter: 2021Q3

REPORT INFORMATION
  Report Type: Spontaneous
  Country: CA (occurrence: CA)
  Receive Date: 20210817
  Receipt Date: 20210817
  Transmission Date: 20211014
  Serious: Yes (Hospitalization, Other)
  Sender: FDA-Public Use
  Company Number: CA-ASTRAZENECA-2021A674333

PATIENT
  Age: 47 Year
  Sex: Female

DRUGS (22)
  1. APO?DOXEPIN [Suspect]
     Active Substance: DOXEPIN
     Indication: MAJOR DEPRESSION
     Route: 048
  2. RISPERIDONE. [Suspect]
     Active Substance: RISPERIDONE
     Indication: AFFECTIVE DISORDER
     Route: 048
  3. SALBUTAMOL [Concomitant]
     Active Substance: ALBUTEROL
     Indication: CHRONIC OBSTRUCTIVE PULMONARY DISEASE
     Dosage: 200.0UG AS REQUIRED
     Route: 055
  4. ACT FLUOXETINE [Suspect]
     Active Substance: FLUOXETINE HYDROCHLORIDE
     Indication: MAJOR DEPRESSION
     Route: 048
  5. ACT FLUOXETINE [Suspect]
     Active Substance: FLUOXETINE HYDROCHLORIDE
     Indication: MAJOR DEPRESSION
     Route: 048
  6. APO?DOXEPIN [Suspect]
     Active Substance: DOXEPIN
     Indication: MAJOR DEPRESSION
     Route: 048
  7. CYCLOBENZAPRINE. [Suspect]
     Active Substance: CYCLOBENZAPRINE
     Indication: PAIN
     Route: 048
  8. QUETIAPINE. [Suspect]
     Active Substance: QUETIAPINE
     Indication: MAJOR DEPRESSION
     Dosage: AS REQUIRED
     Route: 048
  9. GABAPENTIN. [Suspect]
     Active Substance: GABAPENTIN
     Indication: PAIN
     Route: 048
  10. METHADONE [Suspect]
     Active Substance: METHADONE HYDROCHLORIDE
     Indication: DRUG USE DISORDER
     Route: 048
  11. TIOTROPIUM [Concomitant]
     Active Substance: TIOTROPIUM
     Indication: CHRONIC OBSTRUCTIVE PULMONARY DISEASE
     Dosage: 200.0UG AS REQUIRED
     Route: 055
  12. ATENOLOL. [Concomitant]
     Active Substance: ATENOLOL
     Indication: HYPERTENSION
     Route: 048
  13. ACT FLUOXETINE [Suspect]
     Active Substance: FLUOXETINE HYDROCHLORIDE
     Indication: MAJOR DEPRESSION
     Route: 048
  14. APO?DOXEPIN [Suspect]
     Active Substance: DOXEPIN
     Indication: MAJOR DEPRESSION
     Route: 048
  15. LORAZEPAM. [Suspect]
     Active Substance: LORAZEPAM
     Indication: WITHDRAWAL SYNDROME
     Dosage: AS REQUIRED
     Route: 048
  16. VALPROATE SEMISODIUM [Suspect]
     Active Substance: DIVALPROEX SODIUM
     Indication: AFFECTIVE DISORDER
     Route: 048
  17. FUROSEMIDE. [Concomitant]
     Active Substance: FUROSEMIDE
     Indication: OEDEMA PERIPHERAL
     Dosage: 40.0MG AS REQUIRED
     Route: 048
  18. NAPROXEN. [Concomitant]
     Active Substance: NAPROXEN
     Indication: PAIN
     Dosage: 500.0MG AS REQUIRED
     Route: 048
  19. QUETIAPINE. [Suspect]
     Active Substance: QUETIAPINE
     Indication: MAJOR DEPRESSION
     Dosage: 100.0MG AS REQUIRED
     Route: 048
  20. ACT FLUOXETINE [Suspect]
     Active Substance: FLUOXETINE HYDROCHLORIDE
     Indication: MAJOR DEPRESSION
     Route: 048
  21. VALPROATE SEMISODIUM [Suspect]
     Active Substance: DIVALPROEX SODIUM
     Indication: AFFECTIVE DISORDER
     Route: 048
  22. ESTRADIOL. [Concomitant]
     Active Substance: ESTRADIOL
     Indication: ENDOMETRIOSIS
     Route: 048

REACTIONS (4)
  - Depressed level of consciousness [Unknown]
  - Respiratory depression [Unknown]
  - Toxicity to various agents [Unknown]
  - Drug interaction [Unknown]
